FAERS Safety Report 5971027-3 (Version None)
Quarter: 2008Q4

REPORT INFORMATION
  Report Type: 
  Country: None (occurrence: None)
  Receive Date: 20081128
  Receipt Date: 20081119
  Transmission Date: 20090506
  Serious: No
  Sender: FDA-Public Use
  Company Number: US-JNJFOC-20081105349

PATIENT
  Sex: Female
  Weight: 60.78 kg

DRUGS (3)
  1. DURAGESIC-100 [Suspect]
     Indication: SCIATIC NERVE NEUROPATHY
     Route: 062
  2. ROXYCODONE [Concomitant]
     Indication: BREAKTHROUGH PAIN
     Route: 048
  3. ALPRAZOLAM [Concomitant]
     Indication: ANXIETY
     Route: 048

REACTIONS (2)
  - HYPERSENSITIVITY [None]
  - INCORRECT DRUG ADMINISTRATION DURATION [None]
